FAERS Safety Report 10134498 (Version 1)
Quarter: 2014Q2

REPORT INFORMATION
  Report Type: Spontaneous
  Country: BR (occurrence: BR)
  Receive Date: 20140428
  Receipt Date: 20140428
  Transmission Date: 20141212
  Serious: Yes (Death)
  Sender: FDA-Public Use
  Company Number: BR-BAXTER-2013BAX021554

PATIENT
  Age: 7 Month
  Sex: Male
  Weight: 6.5 kg

DRUGS (2)
  1. SEVONESS [Suspect]
     Indication: ANAESTHESIA
     Route: 055
  2. SUCCINYLCHOLINE [Suspect]
     Indication: ANAESTHESIA
     Route: 065

REACTIONS (1)
  - Hyperthermia malignant [Fatal]
